FAERS Safety Report 13319982 (Version 1)
Quarter: 2017Q1

REPORT INFORMATION
  Report Type: Spontaneous
  Country: FR (occurrence: FR)
  Receive Date: 20170310
  Receipt Date: 20170310
  Transmission Date: 20170428
  Serious: Yes (Other)
  Sender: FDA-Public Use
  Company Number: FR-SA-2017SA038496

PATIENT
  Age: 72 Year
  Sex: Male

DRUGS (2)
  1. PLAVIX [Suspect]
     Active Substance: CLOPIDOGREL BISULFATE
     Route: 048
     Dates: end: 20170220
  2. DUOPLAVIN [Suspect]
     Active Substance: ASPIRIN\CLOPIDOGREL
     Route: 048
     Dates: start: 20170216

REACTIONS (4)
  - Wrong drug administered [Unknown]
  - Asthenia [Unknown]
  - Medication error [Unknown]
  - Nausea [Unknown]

NARRATIVE: CASE EVENT DATE: 20170219
